FAERS Safety Report 7050618-5 (Version None)
Quarter: 2010Q4

REPORT INFORMATION
  Report Type: 
  Country: None (occurrence: None)
  Receive Date: 20101018
  Receipt Date: 20101008
  Transmission Date: 20110411
  Serious: Yes (Other)
  Sender: FDA-Public Use
  Company Number: GB-ABBOTT-10P-167-0677026-00

PATIENT
  Age: 72 Year
  Sex: Female

DRUGS (3)
  1. HUMIRA [Suspect]
     Indication: PSORIATIC ARTHROPATHY
     Dates: start: 20090401, end: 20100401
  2. HUMIRA [Suspect]
     Indication: PSORIASIS
  3. BISOPROLOL [Concomitant]
     Indication: PRODUCT USED FOR UNKNOWN INDICATION
     Dosage: LOW DOSE

REACTIONS (4)
  - ARRHYTHMIA [None]
  - HEART VALVE INCOMPETENCE [None]
  - LOWER RESPIRATORY TRACT INFECTION [None]
  - WHEEZING [None]
